FAERS Safety Report 12493565 (Version 1)
Quarter: 2016Q2

REPORT INFORMATION
  Report Type: Spontaneous
  Country: US (occurrence: US)
  Receive Date: 20160623
  Receipt Date: 20160623
  Transmission Date: 20160815
  Serious: No
  Sender: FDA-Public Use
  Company Number: US-PFIZER INC-2016298214

PATIENT
  Age: 60 Year
  Sex: Female
  Weight: 53.61 kg

DRUGS (5)
  1. SYNTHROID [Concomitant]
     Active Substance: LEVOTHYROXINE SODIUM
     Dosage: 88 UG, UNK (TAKE 1 AS DIRECTED)
  2. OMEPRAZOLE. [Concomitant]
     Active Substance: OMEPRAZOLE
     Dosage: 40 MG, 1X/DAY (IN MORNING)
     Route: 048
  3. LYRICA [Suspect]
     Active Substance: PREGABALIN
     Dosage: 50 MG, 1X/DAY (QHS)
     Route: 048
  4. PREDNISONE. [Concomitant]
     Active Substance: PREDNISONE
     Dosage: 20 MG, UNK (3 PO FOR 2 DAYS, THEN 2 PO FOR 2 DAYS, THEN 1 PO FOR 2 DAYS THEN STOP)
     Route: 048
  5. LOTREL [Concomitant]
     Active Substance: AMLODIPINE BESYLATE\BENAZEPRIL HYDROCHLORIDE
     Dosage: UNK (10 MG-20 MG, TAKE L AS DIRECTED)

REACTIONS (4)
  - Constipation [Unknown]
  - Visual impairment [Unknown]
  - Pain in extremity [Unknown]
  - Head discomfort [Unknown]
